FAERS Safety Report 22637053 (Version 4)
Quarter: 2023Q4

REPORT INFORMATION
  Report Type: Report from Study
  Country: KR (occurrence: KR)
  Receive Date: 20230626
  Receipt Date: 20231110
  Transmission Date: 20240109
  Serious: Yes (Death, Hospitalization, Other)
  Sender: FDA-Public Use
  Company Number: KR-TAKEDA-2023TUS042886

PATIENT
  Age: 72 Year
  Sex: Male

DRUGS (2)
  1. MOBOCERTINIB [Suspect]
     Active Substance: MOBOCERTINIB
     Indication: Non-small cell lung cancer
     Dosage: 160 MILLIGRAM, QD
     Route: 048
     Dates: start: 20230424
  2. MOBOCERTINIB [Suspect]
     Active Substance: MOBOCERTINIB
     Indication: EGFR gene mutation
     Dosage: 120 MILLIGRAM, QD
     Route: 048
     Dates: start: 20230501, end: 20230626

REACTIONS (4)
  - Non-small cell lung cancer [Fatal]
  - Hypophagia [Unknown]
  - Asthenia [Unknown]
  - Diarrhoea [Recovering/Resolving]

NARRATIVE: CASE EVENT DATE: 20230425
